FAERS Safety Report 9283872 (Version 1)
Quarter: 2013Q2

REPORT INFORMATION
  Report Type: Spontaneous
  Country: US (occurrence: US)
  Receive Date: 20130510
  Receipt Date: 20130510
  Transmission Date: 20140414
  Serious: No
  Sender: FDA-Public Use
  Company Number: US-009507513-1305USA001695

PATIENT
  Age: 70 Year
  Sex: Male

DRUGS (2)
  1. DULERA [Suspect]
     Indication: WHEEZING
     Dosage: 1 PUFF, FOUR TIMES DAILY
     Route: 055
     Dates: start: 201303, end: 20130426
  2. LEVOTHYROXINE SODIUM [Concomitant]

REACTIONS (6)
  - Sinus headache [Recovering/Resolving]
  - Tinnitus [Recovering/Resolving]
  - Wheezing [Recovering/Resolving]
  - Pyrexia [Recovering/Resolving]
  - Inappropriate schedule of drug administration [Unknown]
  - Off label use [Unknown]
